FAERS Safety Report 6105864-1 (Version None)
Quarter: 2009Q1

REPORT INFORMATION
  Report Type: 
  Country: None (occurrence: None)
  Receive Date: 20090306
  Receipt Date: 20090225
  Transmission Date: 20090719
  Serious: Yes (Hospitalization, Other)
  Sender: FDA-Public Use
  Company Number: US-MERCK-0705USA05329

PATIENT
  Age: 51 Year
  Sex: Female

DRUGS (2)
  1. FOSAMAX [Suspect]
     Indication: OSTEOPOROSIS
     Route: 048
     Dates: end: 20040101
  2. HORMONES (UNSPECIFIED) [Concomitant]
     Route: 065
     Dates: start: 19800101

REACTIONS (35)
  - ABDOMINAL PAIN [None]
  - ADVERSE DRUG REACTION [None]
  - ANXIETY [None]
  - AUTOIMMUNE THYROIDITIS [None]
  - BACK DISORDER [None]
  - BLOOD CHOLESTEROL INCREASED [None]
  - CHRONIC TONSILLITIS [None]
  - COLONIC POLYP [None]
  - DEAFNESS NEUROSENSORY [None]
  - DIARRHOEA [None]
  - DIVERTICULUM [None]
  - DRUG INTOLERANCE [None]
  - EAR INFECTION [None]
  - EAR PAIN [None]
  - FIBROMA [None]
  - GASTROINTESTINAL DISORDER [None]
  - HAEMORRHOIDS [None]
  - LOOSE TOOTH [None]
  - LYME DISEASE [None]
  - MAJOR DEPRESSION [None]
  - MITRAL VALVE PROLAPSE [None]
  - NEURITIS [None]
  - OSTEOPENIA [None]
  - PAIN IN JAW [None]
  - PALPITATIONS [None]
  - RECTAL HAEMORRHAGE [None]
  - SIALOADENITIS [None]
  - SOMATISATION DISORDER [None]
  - SUICIDAL IDEATION [None]
  - TEMPOROMANDIBULAR JOINT SYNDROME [None]
  - THINKING ABNORMAL [None]
  - URINARY TRACT INFECTION [None]
  - VERTIGO [None]
  - VERTIGO LABYRINTHINE [None]
  - VERTIGO POSITIONAL [None]
